FAERS Safety Report 4872163-5 (Version None)
Quarter: 2006Q1

REPORT INFORMATION
  Report Type: 
  Country: None (occurrence: None)
  Receive Date: 20060103
  Receipt Date: 20051219
  Transmission Date: 20060701
  Serious: Yes (Other)
  Sender: FDA-Public Use
  Company Number: US200512003519

PATIENT
  Age: 43 Year
  Sex: Female

DRUGS (3)
  1. HUMALOG [Suspect]
     Dosage: SEE IMAGE
     Dates: start: 20030101
  2. HUMALOG [Suspect]
     Dosage: SEE IMAGE
     Dates: start: 20030101
  3. LANTUS [Suspect]

REACTIONS (1)
  - HERNIA [None]
